FAERS Safety Report 14580885 (Version 2)
Quarter: 2018Q2

REPORT INFORMATION
  Report Type: Report from Study
  Country: None (occurrence: CA)
  Receive Date: 20180228
  Receipt Date: 20180404
  Transmission Date: 20180711
  Serious: Yes (Hospitalization)
  Sender: FDA-Public Use
  Company Number: CA-ABBVIE-17K-028-2196088-00

PATIENT
  Age: 42 Year
  Sex: Male
  Weight: 66 kg

DRUGS (2)
  1. HUMIRA [Suspect]
     Active Substance: ADALIMUMAB
     Route: 058
  2. HUMIRA [Suspect]
     Active Substance: ADALIMUMAB
     Indication: CROHN^S DISEASE
     Route: 058
     Dates: start: 20171120, end: 201712

REACTIONS (1)
  - Bipolar I disorder [Recovered/Resolved]

NARRATIVE: CASE EVENT DATE: 20171222
